FAERS Safety Report 15213640 (Version 2)
Quarter: 2018Q3

REPORT INFORMATION
  Report Type: Spontaneous
  Country: JP (occurrence: JP)
  Receive Date: 20180730
  Receipt Date: 20180807
  Transmission Date: 20181010
  Serious: Yes (Other)
  Sender: FDA-Public Use
  Company Number: JP-TEVA-2018-JP-003780J

PATIENT
  Age: 92 Year
  Sex: Female

DRUGS (9)
  1. DONEPEZIL HYDROCHLORIDE OD [Concomitant]
     Indication: DEMENTIA
     Dosage: 5 MILLIGRAM DAILY;
     Route: 065
  2. LOXOMARIN [Concomitant]
     Active Substance: LOXOPROFEN
     Indication: PAIN
     Dosage: 60 MILLIGRAM DAILY;
     Route: 065
  3. LIMAPROST ALFADEX [Concomitant]
     Active Substance: LIMAPROST
     Indication: HYPOAESTHESIA
     Dosage: 5 MICROGRAM DAILY;
     Route: 065
  4. MEMARY OD [Concomitant]
     Active Substance: MEMANTINE HYDROCHLORIDE
     Indication: DEMENTIA
     Dosage: 10 MILLIGRAM DAILY;
     Route: 065
  5. AZUNOL [Concomitant]
     Active Substance: SODIUM GUALENATE
     Indication: ECZEMA
     Route: 065
  6. LANSOPRAZOLE OD TABLET 15MG ^TEVA^ [Suspect]
     Active Substance: LANSOPRAZOLE
     Indication: GASTROOESOPHAGEAL REFLUX DISEASE
     Dosage: 15 MILLIGRAM DAILY;
     Route: 048
     Dates: start: 20171108, end: 20180523
  7. ALFACALCIDOL [Concomitant]
     Active Substance: ALFACALCIDOL
     Indication: OSTEOPOROSIS
     Dosage: .5 MICROGRAM DAILY;
     Route: 048
  8. CILNIDIPINE [Concomitant]
     Active Substance: CILNIDIPINE
     Indication: HYPERTENSION
     Dosage: 5 MILLIGRAM DAILY;
     Route: 065
  9. AMVALO [Concomitant]
     Indication: HYPERTENSION
     Route: 048

REACTIONS (3)
  - Colitis microscopic [Unknown]
  - Abnormal faeces [Recovered/Resolved]
  - Diarrhoea [Recovered/Resolved]

NARRATIVE: CASE EVENT DATE: 201803
